FAERS Safety Report 8316270-3 (Version None)
Quarter: 2012Q2

REPORT INFORMATION
  Report Type: 
  Country: None (occurrence: None)
  Receive Date: 20120427
  Receipt Date: 20120423
  Transmission Date: 20120825
  Serious: Yes (Other)
  Sender: FDA-Public Use
  Company Number: US-PFIZER INC-2012100183

PATIENT
  Sex: Female
  Weight: 79.365 kg

DRUGS (5)
  1. LYRICA [Suspect]
     Indication: MIGRAINE
     Dosage: 100 MG, 3X/DAY
     Dates: start: 20050101, end: 20060101
  2. LYRICA [Interacting]
     Indication: FIBROMYALGIA
     Dosage: 100 MG, 3X/DAY
     Dates: start: 20100101
  3. LYRICA [Interacting]
     Dosage: 200 MG, 3X/DAY
  4. ABILIFY [Interacting]
     Indication: BIPOLAR DISORDER
  5. ABILIFY [Interacting]
     Indication: PSYCHOTIC DISORDER
     Dosage: 10 MG, DAILY
     Dates: start: 20090101, end: 20120101

REACTIONS (26)
  - VERTIGO [None]
  - ANXIETY [None]
  - SUICIDAL IDEATION [None]
  - ARTHRALGIA [None]
  - EUPHORIC MOOD [None]
  - BACK PAIN [None]
  - DYSGRAPHIA [None]
  - OEDEMA [None]
  - PAIN [None]
  - MOOD ALTERED [None]
  - DRY MOUTH [None]
  - PALPITATIONS [None]
  - STRESS [None]
  - WEIGHT INCREASED [None]
  - MUSCLE SPASMS [None]
  - DISTURBANCE IN ATTENTION [None]
  - DIZZINESS [None]
  - DEPRESSION [None]
  - CONFUSIONAL STATE [None]
  - DRUG INTERACTION [None]
  - FEELING ABNORMAL [None]
  - LIMB DISCOMFORT [None]
  - TREMOR [None]
  - BALANCE DISORDER [None]
  - MEMORY IMPAIRMENT [None]
  - HEADACHE [None]
